FAERS Safety Report 20738933 (Version 2)
Quarter: 2022Q2

REPORT INFORMATION
  Report Type: Spontaneous
  Country: HU (occurrence: HU)
  Receive Date: 20220422
  Receipt Date: 20220429
  Transmission Date: 20220720
  Serious: Yes (Other)
  Sender: FDA-Public Use
  Company Number: HU-NOVARTISPH-NVSC2022HU090523

PATIENT
  Age: 68 Year
  Sex: Female

DRUGS (3)
  1. ALPELISIB [Suspect]
     Active Substance: ALPELISIB
     Indication: Metastases to peritoneum
     Dosage: UNK
     Route: 065
     Dates: start: 20210128
  2. FULVESTRANT [Suspect]
     Active Substance: FULVESTRANT
     Indication: Metastases to peritoneum
     Dosage: UNK
     Route: 065
     Dates: start: 20210128
  3. CETIRIZINE HYDROCHLORIDE [Concomitant]
     Active Substance: CETIRIZINE HYDROCHLORIDE
     Indication: Product used for unknown indication
     Dosage: 1X1
     Route: 065
     Dates: start: 2021

REACTIONS (7)
  - Metastases to peritoneum [Unknown]
  - Malignant neoplasm progression [Unknown]
  - Rash [Recovered/Resolved]
  - Blood glucose increased [Not Recovered/Not Resolved]
  - Weight decreased [Unknown]
  - Intra-abdominal fluid collection [Unknown]
  - Product use in unapproved indication [Unknown]

NARRATIVE: CASE EVENT DATE: 20210201
